FAERS Safety Report 4687992-0 (Version None)
Quarter: 2005Q2

REPORT INFORMATION
  Report Type: 
  Country: None (occurrence: None)
  Receive Date: 20050608
  Receipt Date: 20050531
  Transmission Date: 20051028
  Serious: Yes (Hospitalization)
  Sender: FDA-Public Use
  Company Number: 214890

PATIENT
  Age: 82 Year
  Sex: Female
  Weight: 55.8 kg

DRUGS (7)
  1. AVASTIN [Suspect]
     Indication: NEOPLASM MALIGNANT
     Dosage: 10 MG/KG, UNK; INTRAVENOUS
     Route: 042
     Dates: start: 20050218, end: 20050512
  2. ERLOTINIB (ERLOTINIB) TABLET, 150MG [Suspect]
     Indication: NEOPLASM MALIGNANT
     Dosage: 150MG, UNK; ORAL
     Route: 048
     Dates: start: 20050218, end: 20050526
  3. MEGACE [Concomitant]
  4. OLUX (CLOBETASOL PROPIONATE) [Concomitant]
  5. GLYBURIDE [Concomitant]
  6. DARVOCET [Concomitant]
  7. PROTONIX [Concomitant]

REACTIONS (3)
  - CELLULITIS [None]
  - DERMATITIS EXFOLIATIVE [None]
  - MUCOSAL INFLAMMATION [None]
